FAERS Safety Report 16223104 (Version 1)
Quarter: 2019Q2

REPORT INFORMATION
  Report Type: Spontaneous
  Country: US (occurrence: US)
  Receive Date: 20190419
  Receipt Date: 20190419
  Transmission Date: 20190711
  Serious: Yes (Hospitalization)
  Sender: FDA-Public Use
  Company Number: None

PATIENT
  Age: 79 Year
  Sex: Female
  Weight: 68.7 kg

DRUGS (2)
  1. PEMETREXED. [Concomitant]
     Active Substance: PEMETREXED
  2. PEMBROLIZUMAB. [Suspect]
     Active Substance: PEMBROLIZUMAB
     Indication: LUNG NEOPLASM MALIGNANT
     Dosage: ?          OTHER FREQUENCY:EVERY 3 WEEKS;?
     Route: 042

REACTIONS (2)
  - Colitis ischaemic [None]
  - Large intestine perforation [None]

NARRATIVE: CASE EVENT DATE: 20190408
